FAERS Safety Report 8114333-9 (Version None)
Quarter: 2012Q1

REPORT INFORMATION
  Report Type: 
  Country: None (occurrence: None)
  Receive Date: 20120206
  Receipt Date: 20120110
  Transmission Date: 20120608
  Serious: No
  Sender: FDA-Public Use
  Company Number: US-BIOGENIDEC-2012BI001510

PATIENT
  Age: 35 Year
  Sex: Male

DRUGS (2)
  1. TYSABRI [Suspect]
     Indication: MULTIPLE SCLEROSIS
     Route: 042
     Dates: start: 20091012, end: 20091012
  2. TYSABRI [Suspect]
     Route: 042
     Dates: start: 20101008

REACTIONS (3)
  - WEIGHT DECREASED [None]
  - STAPHYLOCOCCAL INFECTION [None]
  - SCAB [None]
